FAERS Safety Report 6667536-4 (Version None)
Quarter: 2010Q2

REPORT INFORMATION
  Report Type: 
  Country: None (occurrence: None)
  Receive Date: 20100405
  Receipt Date: 20100323
  Transmission Date: 20101027
  Serious: Yes (Hospitalization, Other)
  Sender: FDA-Public Use
  Company Number: PHHY2010IT17742

PATIENT
  Age: 10 Year
  Sex: Male

DRUGS (12)
  1. CYCLOSPORINE [Suspect]
     Indication: STEM CELL TRANSPLANT
     Dosage: 0.5 MG/KG DAILY
  2. CYCLOSPORINE [Suspect]
     Indication: GRAFT VERSUS HOST DISEASE
  3. METHOTREXATE [Suspect]
     Indication: GRAFT VERSUS HOST DISEASE
  4. METHOTREXATE [Suspect]
     Indication: STEM CELL TRANSPLANT
  5. THYMOGLOBULIN [Suspect]
     Indication: GRAFT VERSUS HOST DISEASE
  6. THYMOGLOBULIN [Suspect]
     Indication: STEM CELL TRANSPLANT
  7. METHYLPREDNISOLONE [Suspect]
     Indication: GRAFT VERSUS HOST DISEASE
     Dosage: 0.1 MG/KG DAILY
  8. AZATHIOPRINE [Suspect]
     Indication: GRAFT VERSUS HOST DISEASE
     Dosage: 0.7 MG/KG DAILY
  9. CYCLOPHOSPHAMIDE [Concomitant]
     Indication: GRAFT VERSUS HOST DISEASE
  10. CYCLOPHOSPHAMIDE [Concomitant]
     Indication: STEM CELL TRANSPLANT
  11. IRRADIATION [Concomitant]
  12. MONOCLONAL ANTIBODIES [Concomitant]
     Indication: GRAFT VERSUS HOST DISEASE

REACTIONS (20)
  - ACUTE GRAFT VERSUS HOST DISEASE IN INTESTINE [None]
  - CARDIOTOXICITY [None]
  - CHRONIC GRAFT VERSUS HOST DISEASE [None]
  - CRYPTOSPORIDIOSIS INFECTION [None]
  - CYTOMEGALOVIRUS INFECTION [None]
  - EPSTEIN-BARR VIRUS INFECTION [None]
  - GASTROINTESTINAL DISORDER [None]
  - HUMAN HERPESVIRUS 8 INFECTION [None]
  - KAPOSI'S SARCOMA [None]
  - LUNG NEOPLASM [None]
  - LYMPHADENOPATHY [None]
  - MALAISE [None]
  - OBSTRUCTIVE AIRWAYS DISORDER [None]
  - ORAL DISORDER [None]
  - PARANASAL SINUS DISCOMFORT [None]
  - PYREXIA [None]
  - RHINITIS HYPERTROPHIC [None]
  - SARCOMA METASTATIC [None]
  - TONSILLAR HYPERTROPHY [None]
  - TONSILLECTOMY [None]
